FAERS Safety Report 4807872-7 (Version None)
Quarter: 2005Q4

REPORT INFORMATION
  Report Type: 
  Country: None (occurrence: None)
  Receive Date: 20051020
  Receipt Date: 20051006
  Transmission Date: 20060501
  Serious: Yes (Hospitalization)
  Sender: FDA-Public Use
  Company Number: ENT-2005-0144

PATIENT
  Sex: Male

DRUGS (1)
  1. COMTESS (ENTACAPONE) [Suspect]
     Dosage: 1200 MG (200 MG, 6 IN 1 D), ORAL
     Route: 048

REACTIONS (1)
  - DYSPHAGIA [None]
